FAERS Safety Report 4983099-3 (Version None)
Quarter: 2006Q2

REPORT INFORMATION
  Report Type: 
  Country: None (occurrence: None)
  Receive Date: 20060426
  Receipt Date: 20060414
  Transmission Date: 20061013
  Serious: Yes (Hospitalization)
  Sender: FDA-Public Use
  Company Number: US-JNJFOC-20060404156

PATIENT
  Sex: Male
  Weight: 79.38 kg

DRUGS (19)
  1. DURAGESIC-100 [Suspect]
  2. LOCOID [Concomitant]
     Indication: PSORIASIS
     Route: 061
  3. FLOVENT [Concomitant]
     Indication: LUNG DISORDER
     Dosage: 2 PUFFS, 2 IN 1 DAY, AS NEEDED, INHALATION
     Route: 055
  4. ALBUTEROL SULFATE AUTOHALER [Concomitant]
     Indication: LUNG DISORDER
     Dosage: 2 PUFFS, 2 IN 1 DAY, AS NEEDED, INHALATION
     Route: 055
  5. TRAZODONE HCL [Concomitant]
     Indication: INSOMNIA
     Route: 048
  6. BACLOFEN [Concomitant]
     Route: 048
  7. GABAPENTIN [Concomitant]
     Route: 048
  8. SIMVASTATIN [Concomitant]
     Route: 048
  9. MIRAPEX [Concomitant]
     Dosage: 2 MG, AT BEDTIME, ORAL
     Route: 048
  10. CITALOPRAM [Concomitant]
     Indication: DEPRESSION
     Route: 048
  11. AMBIEN [Concomitant]
     Indication: INSOMNIA
     Route: 048
  12. NEXIUM [Concomitant]
     Route: 048
  13. FINASTERIDE [Concomitant]
     Route: 048
  14. ZANAFLEX [Concomitant]
     Dosage: 40 MG, 1 TO 2 TABLETS, EVERY 6 TO EIGHT HOURS, AS NEEDED, ORAL
     Route: 048
  15. ADVAIR DISKUS 100/50 [Concomitant]
     Route: 055
  16. ADVAIR DISKUS 100/50 [Concomitant]
     Dosage: 1 PUFF, 2 IN 1 DAY, INHALATION
     Route: 055
  17. PROTOPIC [Concomitant]
     Indication: PSORIASIS
     Route: 061
  18. OLUX [Concomitant]
     Indication: PSORIASIS
     Route: 061
  19. BETAMETHASONE [Concomitant]
     Indication: PSORIASIS
     Route: 061

REACTIONS (9)
  - ABDOMINAL PAIN [None]
  - ANAEMIA [None]
  - BRONCHITIS [None]
  - CHEST PAIN [None]
  - CROHN'S DISEASE [None]
  - DEHYDRATION [None]
  - RECTAL HAEMORRHAGE [None]
  - STAPHYLOCOCCAL INFECTION [None]
  - VASCULAR ACCESS COMPLICATION [None]
